FAERS Safety Report 8614541-4 (Version None)
Quarter: 2012Q3

REPORT INFORMATION
  Report Type: 
  Country: None (occurrence: None)
  Receive Date: 20120823
  Receipt Date: 20120821
  Transmission Date: 20120928
  Serious: Yes (Death, Hospitalization)
  Sender: FDA-Public Use
  Company Number: PHHY2012AR070843

PATIENT
  Sex: Male

DRUGS (2)
  1. EXFORGE [Suspect]
     Indication: HYPERTENSION
     Dosage: 1 DF (160 MG VALS AND 5 MG AMLO), DAILY
     Dates: start: 20120401
  2. DIOVAN [Suspect]
     Indication: HYPERTENSION

REACTIONS (7)
  - EMPHYSEMA [None]
  - HYPOKINESIA [None]
  - NECK PAIN [None]
  - DYSPHAGIA [None]
  - ISCHAEMIC STROKE [None]
  - HEADACHE [None]
  - LUNG INFECTION [None]
